FAERS Safety Report 20949936 (Version 1)
Quarter: 2022Q2

REPORT INFORMATION
  Report Type: Spontaneous
  Country: FR (occurrence: FR)
  Receive Date: 20220613
  Receipt Date: 20220613
  Transmission Date: 20220720
  Serious: Yes (Congenital Anomaly, Other)
  Sender: FDA-Public Use
  Company Number: FR-ABBVIE-21K-056-3949543-00

PATIENT
  Sex: Male

DRUGS (3)
  1. VALPROATE SODIUM [Suspect]
     Active Substance: VALPROATE SODIUM
     Indication: Maternal exposure timing unspecified
     Route: 064
  2. VALPROATE SODIUM [Suspect]
     Active Substance: VALPROATE SODIUM
     Indication: Maternal exposure timing unspecified
     Route: 064
  3. FOLIC ACID [Concomitant]
     Active Substance: FOLIC ACID
     Indication: Maternal exposure timing unspecified

REACTIONS (39)
  - Autism spectrum disorder [Unknown]
  - Intellectual disability [Unknown]
  - Disturbance in attention [Unknown]
  - Communication disorder [Unknown]
  - Personal relationship issue [Unknown]
  - Plagiocephaly [Unknown]
  - Arnold-Chiari malformation [Unknown]
  - Echolalia [Unknown]
  - Psychomotor skills impaired [Unknown]
  - Tooth malformation [Unknown]
  - Congenital genital malformation [Unknown]
  - Developmental delay [Unknown]
  - Hypertonia [Unknown]
  - Learning disorder [Unknown]
  - Dysmorphism [Unknown]
  - Behaviour disorder [Unknown]
  - Fine motor skill dysfunction [Unknown]
  - Speech disorder developmental [Unknown]
  - Personal relationship issue [Unknown]
  - Toe walking [Unknown]
  - Antisocial behaviour [Unknown]
  - Eye disorder [Unknown]
  - Pharyngeal disorder [Unknown]
  - Nasal disorder [Unknown]
  - Conjunctivitis [Unknown]
  - Ear infection [Unknown]
  - Anxiety disorder [Unknown]
  - Enuresis [Unknown]
  - Learning disorder [Unknown]
  - Visual acuity reduced [Unknown]
  - Ear, nose and throat disorder [Unknown]
  - Urinary tract disorder [Unknown]
  - Visual impairment [Unknown]
  - Heterophoria [Unknown]
  - Myopia [Unknown]
  - Amblyopia [Unknown]
  - Strabismus [Unknown]
  - Hyperacusis [Unknown]
  - Foetal exposure during pregnancy [Unknown]
